FAERS Safety Report 7782870-2 (Version None)
Quarter: 2011Q3

REPORT INFORMATION
  Report Type: 
  Country: None (occurrence: None)
  Receive Date: 20110928
  Receipt Date: 20110920
  Transmission Date: 20111222
  Serious: Yes (Other)
  Sender: FDA-Public Use
  Company Number: JP-ASTELLAS-2011JP005242

PATIENT
  Sex: Female

DRUGS (11)
  1. ZONISAMIDE [Concomitant]
     Indication: CONVULSION PROPHYLAXIS
     Dosage: 100 MG, BID
     Route: 048
     Dates: start: 20090601
  2. PROGRAF [Suspect]
     Indication: RHEUMATOID ARTHRITIS
     Dosage: 1 MG, UID/QD
     Route: 048
     Dates: start: 20110524, end: 20110726
  3. AMLODIPINE [Concomitant]
     Route: 065
  4. DIOVAN [Concomitant]
     Route: 065
  5. ACTOS [Concomitant]
     Route: 065
  6. LOXONIN [Concomitant]
     Route: 065
  7. LOPRESSOR [Concomitant]
     Route: 065
  8. LANSOPRAZOLE [Concomitant]
     Route: 065
  9. ZETIA [Concomitant]
     Route: 065
  10. BASEN [Concomitant]
     Route: 065
  11. ANPLAG [Concomitant]
     Route: 065

REACTIONS (2)
  - PULMONARY FIBROSIS [None]
  - CELL MARKER INCREASED [None]
